FAERS Safety Report 7339569-6 (Version None)
Quarter: 2011Q1

REPORT INFORMATION
  Report Type: 
  Country: None (occurrence: None)
  Receive Date: 20110308
  Receipt Date: 20110223
  Transmission Date: 20110831
  Serious: No
  Sender: FDA-Public Use
  Company Number: US-AMGEN-USASP2011010505

PATIENT
  Age: 86 Year
  Sex: Female

DRUGS (5)
  1. ANTIHYPERTENSIVES [Concomitant]
  2. PROLIA [Suspect]
     Indication: OSTEOPOROSIS POSTMENOPAUSAL
     Dosage: 60 MG, Q6MO
     Dates: start: 20110218
  3. VITAMINS                           /00067501/ [Concomitant]
  4. CALCIUM [Concomitant]
  5. THYROID THERAPY [Concomitant]

REACTIONS (2)
  - MUSCULAR WEAKNESS [None]
  - FEELING ABNORMAL [None]
